FAERS Safety Report 21384301 (Version 1)
Quarter: 2022Q3

REPORT INFORMATION
  Report Type: Spontaneous
  Country: IE (occurrence: IE)
  Receive Date: 20220928
  Receipt Date: 20220928
  Transmission Date: 20221026
  Serious: Yes (Other)
  Sender: FDA-Public Use
  Company Number: None

PATIENT
  Age: 36 Year
  Sex: Female

DRUGS (5)
  1. STELARA [Suspect]
     Active Substance: USTEKINUMAB
     Indication: Crohn^s disease
     Route: 065
  2. STELARA [Suspect]
     Active Substance: USTEKINUMAB
     Route: 065
     Dates: start: 20220830, end: 20220830
  3. STELARA [Suspect]
     Active Substance: USTEKINUMAB
     Dosage: 90MG BY SUBCUT INJECTION ONCE EVERY 8 WEEKS, 2 CYCLES
     Route: 065
     Dates: start: 20220505
  4. PENTASA [Concomitant]
     Active Substance: MESALAMINE
     Indication: Crohn^s disease
     Dosage: 3G DAILY
     Route: 065
     Dates: start: 20220401, end: 20220830
  5. PURINETHOL [Concomitant]
     Active Substance: MERCAPTOPURINE
     Indication: Crohn^s disease
     Dosage: 100MG ONE DAY/ 50MG NEXT DAY
     Route: 065
     Dates: start: 20220401, end: 20220830

REACTIONS (3)
  - Rash erythematous [Recovering/Resolving]
  - Rash pruritic [Recovering/Resolving]
  - Emotional distress [Recovering/Resolving]

NARRATIVE: CASE EVENT DATE: 20220901
